FAERS Safety Report 14940275 (Version 1)
Quarter: 2018Q2

REPORT INFORMATION
  Report Type: Report from Study
  Country: BE (occurrence: BE)
  Receive Date: 20180525
  Receipt Date: 20180525
  Transmission Date: 20180711
  Serious: No
  Sender: FDA-Public Use
  Company Number: BE-SA-2017SA193947

PATIENT
  Age: 38 Year
  Sex: Female

DRUGS (1)
  1. ALEMTUZUMAB [Suspect]
     Active Substance: ALEMTUZUMAB
     Indication: MULTIPLE SCLEROSIS
     Dosage: UNK UNK,UNK
     Route: 041

REACTIONS (7)
  - Eczema [Unknown]
  - Vomiting [Unknown]
  - Urinary tract infection [Unknown]
  - Vision blurred [Recovered/Resolved]
  - Arthropathy [Unknown]
  - Vaginal haemorrhage [Unknown]
  - Syncope [Unknown]

NARRATIVE: CASE EVENT DATE: 20170923
